FAERS Safety Report 8264732-X (Version None)
Quarter: 2012Q2

REPORT INFORMATION
  Report Type: 
  Country: None (occurrence: None)
  Receive Date: 20120406
  Receipt Date: 20120326
  Transmission Date: 20120825
  Serious: Yes (Hospitalization, Other)
  Sender: FDA-Public Use
  Company Number: US-JNJFOC-20110103642

PATIENT
  Sex: Female
  Weight: 75.8 kg

DRUGS (7)
  1. INFLIXIMAB, RECOMBINANT [Suspect]
     Indication: INFLAMMATORY BOWEL DISEASE
     Route: 042
     Dates: start: 20110113
  2. FERROUS SULFATE TAB [Concomitant]
  3. INFLIXIMAB, RECOMBINANT [Suspect]
     Route: 042
     Dates: start: 20091221
  4. HUMALOG [Concomitant]
  5. MESALAMINE [Concomitant]
  6. POSTURE D CALCIUM [Concomitant]
  7. MIRALAX [Concomitant]

REACTIONS (2)
  - COLITIS [None]
  - HAEMORRHAGIC ANAEMIA [None]
